FAERS Safety Report 24051933 (Version 2)
Quarter: 2024Q3

REPORT INFORMATION
  Report Type: Report from Study
  Country: US (occurrence: US)
  Receive Date: 20240704
  Receipt Date: 20240905
  Transmission Date: 20241017
  Serious: Yes (Other)
  Sender: NOVARTIS
  Company Number: US-002147023-NVSC2024US137342

PATIENT
  Sex: Female

DRUGS (2)
  1. KESIMPTA [Suspect]
     Active Substance: OFATUMUMAB
     Indication: Multiple sclerosis
     Dosage: 20 MG, QMO (LOADING DOSE)
     Route: 058
     Dates: start: 20240406
  2. KESIMPTA [Suspect]
     Active Substance: OFATUMUMAB
     Dosage: 20 MG, QMO (FIRST MONTHLY MAINTENANCE DOSE OF KESIMPTA)
     Route: 058
     Dates: start: 20240504

REACTIONS (5)
  - Multiple sclerosis relapse [Recovering/Resolving]
  - Cerebrovascular accident [Recovering/Resolving]
  - Dysgraphia [Recovering/Resolving]
  - Speech disorder [Recovering/Resolving]
  - Central nervous system lesion [Recovering/Resolving]
